FAERS Safety Report 5335385-5 (Version None)
Quarter: 2007Q2

REPORT INFORMATION
  Report Type: 
  Country: None (occurrence: None)
  Receive Date: 20070525
  Receipt Date: 20070515
  Transmission Date: 20071010
  Serious: Yes (Hospitalization, Other)
  Sender: FDA-Public Use
  Company Number: US-PFIZER INC-2007039923

PATIENT
  Age: 45 Year
  Sex: Female

DRUGS (2)
  1. SOLU-MEDROL [Suspect]
     Route: 042
  2. REBIF [Suspect]

REACTIONS (2)
  - ABASIA [None]
  - MOBILITY DECREASED [None]
